FAERS Safety Report 5367514-1 (Version None)
Quarter: 2007Q2

REPORT INFORMATION
  Report Type: 
  Country: None (occurrence: None)
  Receive Date: 20070622
  Receipt Date: 20060929
  Transmission Date: 20071010
  Serious: No
  Sender: FDA-Public Use
  Company Number: US-ASTRAZENECA-2006UW19008

PATIENT
  Age: 87 Year
  Sex: Female
  Weight: 59.9 kg

DRUGS (5)
  1. PULMICORT [Suspect]
     Indication: DYSPNOEA
     Dosage: 1 PUFF TID
     Route: 055
  2. PREDNISONE TAB [Concomitant]
  3. FOLIC ACID [Concomitant]
  4. AZATHIOPRINE [Concomitant]
  5. OMEPRAZOLE [Concomitant]

REACTIONS (1)
  - NASAL CONGESTION [None]
